FAERS Safety Report 9330836 (Version 4)
Quarter: 2013Q3

REPORT INFORMATION
  Report Type: Spontaneous
  Country: FR (occurrence: FR)
  Receive Date: 20130605
  Receipt Date: 20130722
  Transmission Date: 20140515
  Serious: Yes (Other)
  Sender: FDA-Public Use
  Company Number: FR-JNJFOC-20130522874

PATIENT
  Age: 19 Year
  Sex: Female
  Weight: 50 kg

DRUGS (4)
  1. REMICADE [Suspect]
     Indication: CROHN^S DISEASE
     Route: 042
     Dates: start: 20130416
  2. REMICADE [Suspect]
     Indication: CROHN^S DISEASE
     Dosage: SECOND INFUSION
     Route: 042
     Dates: start: 20130502, end: 20130502
  3. ATARAX [Concomitant]
     Indication: PREMEDICATION
     Route: 048
     Dates: start: 20130502
  4. SOLUPRED [Concomitant]
     Indication: PREMEDICATION
     Route: 048
     Dates: start: 20130502

REACTIONS (4)
  - Respiratory disorder [Unknown]
  - Infusion related reaction [Unknown]
  - Oxygen saturation decreased [Unknown]
  - Dyspnoea [Recovered/Resolved]
